FAERS Safety Report 12588187 (Version 2)
Quarter: 2016Q3

REPORT INFORMATION
  Report Type: Spontaneous
  Country: GB (occurrence: GB)
  Receive Date: 20160725
  Receipt Date: 20160803
  Transmission Date: 20161109
  Serious: Yes (Other)
  Sender: FDA-Public Use
  Company Number: GB-TEVA-677591ACC

PATIENT
  Age: 30 Year
  Sex: Male

DRUGS (16)
  1. PAROXETINE. [Suspect]
     Active Substance: PAROXETINE
     Indication: DEPRESSION
     Dosage: 10 DOSAGE FORMS DAILY; 10 MG/ML, QD
     Route: 048
     Dates: start: 20020620, end: 20051103
  2. PAROXETINE. [Suspect]
     Active Substance: PAROXETINE
     Dosage: 20 MILLIGRAM DAILY; 20 MG, QD
     Route: 065
     Dates: start: 199910, end: 20160411
  3. PAROXETINE. [Suspect]
     Active Substance: PAROXETINE
     Route: 065
  4. PAROXETINE. [Suspect]
     Active Substance: PAROXETINE
     Route: 065
     Dates: start: 200209
  5. SEROXAT [Suspect]
     Active Substance: PAROXETINE HYDROCHLORIDE
     Indication: DEPRESSION
     Dosage: 20 MILLIGRAM DAILY; 20 MG, QD
     Route: 065
     Dates: start: 19990910, end: 20051021
  6. PAROXETINE. [Suspect]
     Active Substance: PAROXETINE
     Dosage: 40 MILLIGRAM DAILY; 40 MG, QD
     Route: 048
     Dates: start: 20101011, end: 20150128
  7. PAROXETINE. [Suspect]
     Active Substance: PAROXETINE
     Dosage: 10 MILLIGRAM DAILY;
     Route: 065
  8. PAROXETINE. [Suspect]
     Active Substance: PAROXETINE
     Dosage: 6 ML DAILY;
     Route: 065
  9. PAROXETINE. [Suspect]
     Active Substance: PAROXETINE
     Route: 065
     Dates: start: 20160227
  10. PAROXETINE. [Suspect]
     Active Substance: PAROXETINE
     Route: 065
     Dates: end: 200202
  11. PAROXETINE. [Suspect]
     Active Substance: PAROXETINE
     Dosage: 10 MILLIGRAM DAILY; 10 MG, QD
     Route: 048
     Dates: start: 20090616, end: 20130325
  12. PAROXETINE. [Suspect]
     Active Substance: PAROXETINE
     Dosage: 30 MILLIGRAM DAILY; 30 MG, QD
     Route: 048
     Dates: start: 20070924, end: 20130325
  13. PAROXETINE. [Suspect]
     Active Substance: PAROXETINE
     Route: 065
  14. SEROXAT [Suspect]
     Active Substance: PAROXETINE HYDROCHLORIDE
     Dosage: 30 MILLIGRAM DAILY; 30 MG, QD
     Dates: start: 20080320
  15. PAROXETINE. [Suspect]
     Active Substance: PAROXETINE
     Indication: PANIC ATTACK
     Dosage: 20 DOSAGE FORMS DAILY; 20 MG/ML, QD
     Route: 048
     Dates: start: 20050629, end: 20051118
  16. DIAZEPAM. [Concomitant]
     Active Substance: DIAZEPAM
     Indication: PRODUCT USED FOR UNKNOWN INDICATION
     Dosage: 5 MG, PRN
     Dates: start: 20080327

REACTIONS (13)
  - Obsessive thoughts [Unknown]
  - Memory impairment [Unknown]
  - Disturbance in attention [Unknown]
  - Fatigue [Unknown]
  - Lethargy [Unknown]
  - Hyperhidrosis [Unknown]
  - Tremor [Unknown]
  - Agitation [Unknown]
  - Confusional state [Unknown]
  - Suicidal ideation [Unknown]
  - Drug withdrawal syndrome [Unknown]
  - Weight increased [Unknown]
  - Sleep disorder [Unknown]

NARRATIVE: CASE EVENT DATE: 200509
